FAERS Safety Report 10727103 (Version 1)
Quarter: 2015Q1

REPORT INFORMATION
  Report Type: Spontaneous
  Country: US (occurrence: None)
  Receive Date: 20150120
  Receipt Date: 20150120
  Transmission Date: 20150721
  Serious: Yes (Life-Threatening, Hospitalization)
  Sender: FDA-Public Use
  Company Number: None

PATIENT
  Age: 87 Year
  Sex: Female
  Weight: 116 kg

DRUGS (2)
  1. WARFARIN [Suspect]
     Active Substance: WARFARIN
     Indication: EMBOLISM VENOUS
     Route: 048
  2. FLUCONAZOLE. [Suspect]
     Active Substance: FLUCONAZOLE
     Indication: CANDIDA PNEUMONIA
     Route: 048

REACTIONS (6)
  - Epistaxis [None]
  - International normalised ratio increased [None]
  - Lip haemorrhage [None]
  - Candida pneumonia [None]
  - Drug monitoring procedure not performed [None]
  - Upper limb fracture [None]

NARRATIVE: CASE EVENT DATE: 20140924
